FAERS Safety Report 18743090 (Version 2)
Quarter: 2021Q1

REPORT INFORMATION
  Report Type: Report from Study
  Country: None (occurrence: BE)
  Receive Date: 20210115
  Receipt Date: 20210122
  Transmission Date: 20210419
  Serious: Yes (Death, Hospitalization)
  Sender: FDA-Public Use
  Company Number: BE-ABBVIE-21K-013-3730830-00

PATIENT
  Age: 76 Year
  Sex: Male
  Weight: 95 kg

DRUGS (5)
  1. DUODOPA [Suspect]
     Active Substance: CARBIDOPA\LEVODOPA
     Indication: PARKINSON^S DISEASE
     Dosage: UNKNOWN DOSAGES
     Route: 050
     Dates: start: 20110110, end: 20200609
  2. DUODOPA [Suspect]
     Active Substance: CARBIDOPA\LEVODOPA
     Dosage: MD= 8.5 ML, CD= 3.3 ML/HR DURING 16HRS, ED= 2.5 ML
     Route: 050
     Dates: start: 20200609, end: 20210113
  3. AMANTAN [Concomitant]
     Indication: PARKINSON^S DISEASE
     Dosage: PRIOR TO DUODOPA THERAPY
  4. AMANTAN [Concomitant]
     Dosage: AFTER START DUODOPA THERAPY
  5. SERENASE [Concomitant]
     Indication: PRODUCT USED FOR UNKNOWN INDICATION

REACTIONS (2)
  - Death [Fatal]
  - Palliative care [Unknown]

NARRATIVE: CASE EVENT DATE: 20210119
